FAERS Safety Report 24400849 (Version 2)
Quarter: 2024Q4

REPORT INFORMATION
  Report Type: Spontaneous
  Country: CO (occurrence: CO)
  Receive Date: 20241006
  Receipt Date: 20241115
  Transmission Date: 20250115
  Serious: Yes (Death, Hospitalization, Other)
  Sender: AMGEN
  Company Number: CO-AMGEN-COLSP2024196260

PATIENT
  Age: 64 Year
  Sex: Male

DRUGS (7)
  1. PANITUMUMAB [Suspect]
     Active Substance: PANITUMUMAB
     Indication: Adenocarcinoma of colon
     Dosage: UNK
     Route: 065
  2. BEVACIZUMAB [Suspect]
     Active Substance: BEVACIZUMAB
     Indication: Adenocarcinoma of colon
     Dosage: UNK
     Route: 065
  3. LEUCOVORIN [Suspect]
     Active Substance: LEUCOVORIN\LEUCOVORIN CALCIUM
     Indication: Adenocarcinoma of colon
     Dosage: UNK
     Route: 065
  4. FLUOROURACIL [Suspect]
     Active Substance: FLUOROURACIL
     Indication: Adenocarcinoma of colon
     Dosage: UNK
     Route: 065
  5. IRINOTECAN [Suspect]
     Active Substance: IRINOTECAN
     Indication: Adenocarcinoma of colon
     Dosage: UNK
     Route: 065
  6. CETUXIMAB [Suspect]
     Active Substance: CETUXIMAB
     Indication: Adenocarcinoma of colon
     Dosage: UNK
     Route: 065
  7. CAPECITABINE [Suspect]
     Active Substance: CAPECITABINE
     Indication: Adenocarcinoma of colon
     Dosage: UNK
     Route: 065

REACTIONS (16)
  - Death [Fatal]
  - Adenocarcinoma of colon [Unknown]
  - Hydronephrosis [Unknown]
  - Trichosporon infection [Unknown]
  - Pseudomonas infection [Unknown]
  - Enterococcal infection [Unknown]
  - General physical health deterioration [Unknown]
  - Altered state of consciousness [Unknown]
  - Somnolence [Unknown]
  - Hypotension [Unknown]
  - Tachycardia [Unknown]
  - Urinary tract infection [Unknown]
  - Anaemia [Unknown]
  - Rash [Unknown]
  - Therapy partial responder [Unknown]
  - Aggression [Unknown]
